FAERS Safety Report 5408772-4 (Version None)
Quarter: 2007Q3

REPORT INFORMATION
  Report Type: 
  Country: None (occurrence: None)
  Receive Date: 20070808
  Receipt Date: 20070724
  Transmission Date: 20080115
  Serious: Yes (Other)
  Sender: FDA-Public Use
  Company Number: GB-PFIZER INC-2007051492

PATIENT
  Sex: Female

DRUGS (2)
  1. DIFLUCAN [Suspect]
     Route: 048
  2. ZIDOVUDINE [Interacting]

REACTIONS (3)
  - DRUG INTERACTION [None]
  - ILL-DEFINED DISORDER [None]
  - VOMITING [None]
